FAERS Safety Report 14211424 (Version 2)
Quarter: 2018Q3

REPORT INFORMATION
  Report Type: Spontaneous
  Country: JP (occurrence: JP)
  Receive Date: 20171121
  Receipt Date: 20180905
  Transmission Date: 20181010
  Serious: Yes (Hospitalization, Other)
  Sender: FDA-Public Use
  Company Number: JP-SA-2017SA230508

PATIENT
  Age: 51 Year
  Sex: Female

DRUGS (1)
  1. XYZAL [Suspect]
     Active Substance: LEVOCETIRIZINE DIHYDROCHLORIDE
     Indication: PRODUCT USED FOR UNKNOWN INDICATION
     Dosage: 5 MG,QD
     Route: 048
     Dates: start: 20160116, end: 20160305

REACTIONS (2)
  - Drug-induced liver injury [Recovering/Resolving]
  - Jaundice [Recovered/Resolved]

NARRATIVE: CASE EVENT DATE: 20160306
